FAERS Safety Report 22097376 (Version 4)
Quarter: 2023Q2

REPORT INFORMATION
  Report Type: Spontaneous
  Country: NL (occurrence: NL)
  Receive Date: 20230315
  Receipt Date: 20230516
  Transmission Date: 20230721
  Serious: Yes (Other)
  Sender: FDA-Public Use
  Company Number: NL-GILEAD-2023-0618954

PATIENT
  Age: 56 Year
  Sex: Male

DRUGS (20)
  1. AMPHOTERICIN B [Suspect]
     Active Substance: AMPHOTERICIN B
     Indication: Endophthalmitis
     Dosage: UNK UNK, UNKNOWN FREQ.
     Route: 050
     Dates: start: 20210330, end: 20210415
  2. AMPHOTERICIN B [Suspect]
     Active Substance: AMPHOTERICIN B
     Indication: Endocarditis
  3. AMPHOTERICIN B [Suspect]
     Active Substance: AMPHOTERICIN B
     Indication: Endophthalmitis
     Dosage: UNK UNK, UNKNOWN FREQ.
     Route: 065
     Dates: start: 20210330, end: 20210415
  4. VORICONAZOLE [Suspect]
     Active Substance: VORICONAZOLE
     Indication: Endocarditis
     Dosage: UNK UNK, UNKNOWN FREQ.
     Route: 042
     Dates: start: 20210329, end: 202112
  5. VORICONAZOLE [Suspect]
     Active Substance: VORICONAZOLE
     Route: 048
     Dates: start: 2021, end: 2021
  6. DEXAMETHASONE [Suspect]
     Active Substance: DEXAMETHASONE
     Indication: Rheumatoid arthritis
     Dosage: 0.25, ONCE DAILY
     Route: 065
  7. DEXAMETHASONE [Suspect]
     Active Substance: DEXAMETHASONE
     Dosage: 0.25, ONCE DAILY
     Route: 065
  8. VORICONAZOLE [Suspect]
     Active Substance: VORICONAZOLE
     Indication: Endocarditis
     Route: 048
     Dates: start: 20210513, end: 202112
  9. POSACONAZOLE [Suspect]
     Active Substance: POSACONAZOLE
     Indication: Fungal infection
     Route: 048
  10. POSACONAZOLE [Suspect]
     Active Substance: POSACONAZOLE
     Indication: Hepatic enzyme abnormal
  11. POSACONAZOLE [Suspect]
     Active Substance: POSACONAZOLE
     Indication: Periostitis
  12. VORICONAZOLE [Suspect]
     Active Substance: VORICONAZOLE
     Indication: Endocarditis
     Route: 048
     Dates: start: 2021, end: 2021
  13. VORICONAZOLE [Suspect]
     Active Substance: VORICONAZOLE
     Route: 042
     Dates: start: 20210329, end: 202112
  14. FILGOTINIB [Concomitant]
     Active Substance: FILGOTINIB
     Indication: Rheumatoid arthritis
     Route: 048
     Dates: start: 202207
  15. LEFLUNOMIDE [Concomitant]
     Active Substance: LEFLUNOMIDE
     Indication: Rheumatoid arthritis
     Dosage: UNK UNK, UNKNOWN FREQ.
     Route: 065
  16. LEFLUNOMIDE [Concomitant]
     Active Substance: LEFLUNOMIDE
     Dosage: UNK UNK, UNKNOWN FREQ.
     Route: 065
  17. LEFLUNOMIDE [Concomitant]
     Active Substance: LEFLUNOMIDE
     Dosage: UNK UNK, UNKNOWN FREQ.
     Route: 065
  18. BARICITINIB [Concomitant]
     Active Substance: BARICITINIB
     Indication: Product used for unknown indication
     Dosage: UNK UNK, UNKNOWN FREQ.
     Route: 065
  19. PREDNISOLONE [Concomitant]
     Active Substance: PREDNISOLONE
     Indication: Product used for unknown indication
     Dosage: UNK UNK, UNKNOWN FREQ.
     Route: 065
  20. COTRIMOXAZOLE [Concomitant]
     Active Substance: SULFAMETHOXAZOLE\TRIMETHOPRIM
     Indication: Prophylaxis
     Route: 048
     Dates: start: 202103

REACTIONS (4)
  - Mitral valve replacement [Recovered/Resolved]
  - Hepatic enzyme abnormal [Recovered/Resolved]
  - Periostitis [Recovered/Resolved]
  - Off label use [Unknown]
